FAERS Safety Report 9919215 (Version 1)
Quarter: 2014Q1

REPORT INFORMATION
  Report Type: Spontaneous
  Country: US (occurrence: US)
  Receive Date: 20140224
  Receipt Date: 20140224
  Transmission Date: 20141002
  Serious: No
  Sender: FDA-Public Use
  Company Number: US-JNJFOC-20140202746

PATIENT
  Age: 14 Year
  Sex: Female

DRUGS (2)
  1. INVEGA SUSTENNA [Suspect]
     Indication: AFFECTIVE DISORDER
     Dosage: DAY 1 DOSE
     Route: 030
     Dates: start: 20140112, end: 20140112
  2. INVEGA SUSTENNA [Suspect]
     Indication: AFFECTIVE DISORDER
     Dosage: DAY 8 DOSE
     Route: 030
     Dates: start: 20140124, end: 20140124

REACTIONS (8)
  - Eye disorder [Unknown]
  - Dysarthria [Unknown]
  - Dyspnoea [Unknown]
  - Dyskinesia [Unknown]
  - Extrapyramidal disorder [Unknown]
  - Vision blurred [Unknown]
  - Inappropriate schedule of drug administration [Unknown]
  - Off label use [Unknown]
